FAERS Safety Report 4795823-3 (Version None)
Quarter: 2005Q4

REPORT INFORMATION
  Report Type: 
  Country: None (occurrence: None)
  Receive Date: 20051007
  Receipt Date: 20050925
  Transmission Date: 20060501
  Serious: Yes (Other)
  Sender: FDA-Public Use
  Company Number: 2005132191

PATIENT
  Age: 18 Year
  Sex: Male
  Weight: 68.0396 kg

DRUGS (1)
  1. NATURAL CITRUS LISTERINE (MENTHOL, METHYL SALICYLATE, EUCALYPTOL, THYM [Suspect]
     Indication: ALCOHOL POISONING
     Dosage: LESS THAN 1 BOTTLE ONCE; ORAL
     Route: 048
     Dates: start: 20050925, end: 20050925

REACTIONS (3)
  - GAIT DISTURBANCE [None]
  - INTENTIONAL DRUG MISUSE [None]
  - OVERDOSE [None]
